FAERS Safety Report 6929870-X (Version None)
Quarter: 2010Q3

REPORT INFORMATION
  Report Type: 
  Country: None (occurrence: None)
  Receive Date: 20100818
  Receipt Date: 20100811
  Transmission Date: 20110219
  Serious: Yes (Death, Other)
  Sender: FDA-Public Use
  Company Number: IT-CELGENEUS-083-20785-10040326

PATIENT

DRUGS (7)
  1. THALIDOMIDE PHARMION [Suspect]
     Indication: MULTIPLE MYELOMA
     Route: 048
  2. DEXAMETHASONE [Suspect]
     Indication: MULTIPLE MYELOMA
     Route: 065
  3. DEXAMETHASONE [Suspect]
     Route: 065
  4. DOXORUBICIN HCL [Suspect]
     Indication: MULTIPLE MYELOMA
     Route: 065
  5. MELPHALAN [Suspect]
     Indication: MULTIPLE MYELOMA
     Route: 065
  6. WARFARIN SODIUM [Concomitant]
     Indication: THROMBOSIS PROPHYLAXIS
     Route: 065
  7. CIPROFLOXACIN [Concomitant]
     Indication: ANTIBIOTIC PROPHYLAXIS
     Route: 065

REACTIONS (24)
  - ACUTE HEPATIC FAILURE [None]
  - ALOPECIA [None]
  - ASTHENIA [None]
  - ATRIAL FIBRILLATION [None]
  - CEREBRAL HAEMORRHAGE [None]
  - CONSTIPATION [None]
  - DEEP VEIN THROMBOSIS [None]
  - DIZZINESS [None]
  - DYSAESTHESIA [None]
  - EMBOLISM ARTERIAL [None]
  - FATIGUE [None]
  - HYPERGLYCAEMIA [None]
  - INFECTION [None]
  - MUCOSAL INFLAMMATION [None]
  - MYALGIA [None]
  - MYOCARDIAL INFARCTION [None]
  - MYOCARDIAL ISCHAEMIA [None]
  - NEUROPATHY PERIPHERAL [None]
  - NEUTROPENIA [None]
  - OEDEMA [None]
  - PULMONARY EMBOLISM [None]
  - SOMNOLENCE [None]
  - THROMBOCYTOPENIA [None]
  - TREMOR [None]
